FAERS Safety Report 12354735 (Version 1)
Quarter: 2016Q2

REPORT INFORMATION
  Report Type: Report from Study
  Country: GB (occurrence: GB)
  Receive Date: 20160511
  Receipt Date: 20160511
  Transmission Date: 20160815
  Serious: Yes (Hospitalization)
  Sender: FDA-Public Use
  Company Number: PHFR2016GB003921

PATIENT
  Sex: Male

DRUGS (1)
  1. TOBI PODHALER [Suspect]
     Active Substance: TOBRAMYCIN
     Indication: CYSTIC FIBROSIS
     Dosage: 4 DF (4 CAPSULES TWICE A DAY USING PODHALER DEVICE AS DIRECTED FOR USE ON ALTERNATIVE MONTHS)
     Route: 055

REACTIONS (3)
  - Body temperature increased [Unknown]
  - Lung infection [Unknown]
  - Malaise [Unknown]
